FAERS Safety Report 9089774 (Version 1)
Quarter: 2013Q1

REPORT INFORMATION
  Report Type: Report from Study
  Country: US (occurrence: US)
  Receive Date: 20130201
  Receipt Date: 20130201
  Transmission Date: 20140127
  Serious: No
  Sender: FDA-Public Use
  Company Number: US-ABBOTT-12P-163-1019876-00

PATIENT
  Sex: Female

DRUGS (3)
  1. HUMIRA [Suspect]
     Indication: PSORIASIS
     Dates: start: 201209, end: 201209
  2. HUMIRA [Suspect]
     Dosage: ONE DAY AFTER INITIAL DOSE
     Dates: start: 201209
  3. HUMIRA [Suspect]
     Dates: start: 201209

REACTIONS (2)
  - Injection site erythema [Recovered/Resolved]
  - Injection site pruritus [Recovered/Resolved]
